FAERS Safety Report 4296251-X (Version None)
Quarter: 2004Q1

REPORT INFORMATION
  Report Type: 
  Country: None (occurrence: None)
  Receive Date: 20040217
  Receipt Date: 20030929
  Transmission Date: 20041129
  Serious: Yes (Other)
  Sender: FDA-Public Use
  Company Number: US-GLAXOSMITHKLINE-A0427885A

PATIENT
  Age: 42 Year
  Sex: Male

DRUGS (6)
  1. LAMICTAL [Suspect]
     Dosage: 25MG VARIABLE DOSE
     Route: 048
     Dates: start: 19960101
  2. TEGRETOL [Concomitant]
  3. DEXAMETHASONE [Concomitant]
  4. BACTRIM [Concomitant]
  5. MULTI-VITAMIN [Concomitant]
  6. CANCER CHEMOTHERAPY [Concomitant]

REACTIONS (5)
  - CONFUSIONAL STATE [None]
  - DRUG INEFFECTIVE [None]
  - DRUG LEVEL DECREASED [None]
  - GRAND MAL CONVULSION [None]
  - PHARMACEUTICAL PRODUCT COMPLAINT [None]
